FAERS Safety Report 6311058-7 (Version None)
Quarter: 2009Q3

REPORT INFORMATION
  Report Type: 
  Country: None (occurrence: None)
  Receive Date: 20090817
  Receipt Date: 20090807
  Transmission Date: 20100115
  Serious: Yes (Hospitalization)
  Sender: FDA-Public Use
  Company Number: US-JNJFOC-20090803254

PATIENT
  Sex: Male

DRUGS (6)
  1. TYLENOL (CAPLET) [Suspect]
  2. TYLENOL (CAPLET) [Suspect]
     Indication: DRUG USE FOR UNKNOWN INDICATION
  3. EFFEXOR [Concomitant]
  4. LAMICTAL [Concomitant]
  5. GEODON [Concomitant]
  6. DURAGESIC-100 [Concomitant]
     Route: 062

REACTIONS (4)
  - HEPATIC ENZYME INCREASED [None]
  - INTENTIONAL OVERDOSE [None]
  - LETHARGY [None]
  - SUICIDE ATTEMPT [None]
